FAERS Safety Report 17663581 (Version 1)
Quarter: 2020Q2

REPORT INFORMATION
  Report Type: Report from Study
  Country: US (occurrence: US)
  Receive Date: 20200413
  Receipt Date: 20200413
  Transmission Date: 20200713
  Serious: Yes (Hospitalization, Other)
  Sender: FDA-Public Use
  Company Number: US-BRISTOL-MYERS SQUIBB COMPANY-BMS-2020-029912

PATIENT
  Age: 70 Year
  Sex: Male
  Weight: 116.1 kg

DRUGS (4)
  1. IPILIMUMAB [Suspect]
     Active Substance: IPILIMUMAB
     Indication: PROSTATE CANCER METASTATIC
     Dosage: UNK
     Route: 065
  2. PROSTVAC [Suspect]
     Active Substance: RILIMOGENE GALVACIREPVEC
     Indication: PROSTATE CANCER METASTATIC
     Dosage: UNK
     Route: 065
  3. NIVOLUMAB [Suspect]
     Active Substance: NIVOLUMAB
     Indication: PROSTATE CANCER METASTATIC
     Dosage: UNK
     Route: 065
  4. METHIMAZOLE. [Concomitant]
     Active Substance: METHIMAZOLE
     Indication: PRODUCT USED FOR UNKNOWN INDICATION
     Dosage: UNK
     Route: 065
     Dates: end: 20200408

REACTIONS (3)
  - Hypercalcaemia [Recovered/Resolved]
  - Hypothyroidism [Unknown]
  - Acute kidney injury [Unknown]

NARRATIVE: CASE EVENT DATE: 202003
